FAERS Safety Report 13274536 (Version 1)
Quarter: 2017Q1

REPORT INFORMATION
  Report Type: Spontaneous
  Country: AT (occurrence: AT)
  Receive Date: 20170227
  Receipt Date: 20170227
  Transmission Date: 20170428
  Serious: Yes (Hospitalization, Other)
  Sender: FDA-Public Use
  Company Number: AT-ELI_LILLY_AND_COMPANY-AT201702006007

PATIENT
  Sex: Male

DRUGS (31)
  1. ZYPREXA [Suspect]
     Active Substance: OLANZAPINE
     Dosage: 25 MG, UNKNOWN
     Route: 065
     Dates: start: 20160826
  2. HYDAL [Concomitant]
     Active Substance: HYDROMORPHONE HYDROCHLORIDE
     Dosage: 1.3 MG, UNKNOWN
     Route: 065
     Dates: start: 20160707, end: 20160707
  3. DEPAKINE                           /00228501/ [Concomitant]
     Active Substance: VALPROIC ACID
     Dosage: 25000 MG, UNKNOWN
     Route: 065
     Dates: start: 20160716
  4. TEMESTA EXPIDET [Concomitant]
     Active Substance: LORAZEPAM
     Dosage: 5 MG, UNKNOWN
     Route: 065
     Dates: start: 20160715, end: 20160725
  5. TEMESTA                            /00273201/ [Concomitant]
     Active Substance: LORAZEPAM
     Dosage: 2 MG, UNKNOWN
     Route: 065
     Dates: start: 20160726, end: 20160728
  6. ABILIFY MAINTENA [Concomitant]
     Active Substance: ARIPIPRAZOLE
     Dosage: 400 MG, UNKNOWN
     Route: 030
     Dates: start: 20160919, end: 20160919
  7. ZYPREXA [Suspect]
     Active Substance: OLANZAPINE
     Dosage: 30 MG, UNKNOWN
     Route: 065
     Dates: start: 20160706, end: 20160823
  8. HYDAL [Concomitant]
     Active Substance: HYDROMORPHONE HYDROCHLORIDE
     Dosage: 1.3 MG, UNKNOWN
     Route: 065
     Dates: start: 20160711, end: 20160711
  9. DEPAKINE                           /00228501/ [Concomitant]
     Active Substance: VALPROIC ACID
     Dosage: 2000 MG, UNKNOWN
     Dates: start: 20160630, end: 20160715
  10. TEMESTA                            /00273201/ [Concomitant]
     Active Substance: LORAZEPAM
     Dosage: 0.5 MG, UNKNOWN
     Route: 065
     Dates: start: 20160902, end: 20160902
  11. PANTOLOC                           /01263204/ [Concomitant]
     Active Substance: PANTOPRAZOLE SODIUM
     Dosage: 40 MG, UNKNOWN
     Route: 065
     Dates: start: 20160630, end: 20160829
  12. HALDOL [Suspect]
     Active Substance: HALOPERIDOL
     Dosage: 5 MG, UNKNOWN
     Route: 065
     Dates: start: 20160710, end: 20160713
  13. HALDOL [Suspect]
     Active Substance: HALOPERIDOL
     Dosage: 10 MG, UNKNOWN
     Route: 065
     Dates: start: 20160812, end: 20160823
  14. HALDOL [Suspect]
     Active Substance: HALOPERIDOL
     Indication: PRODUCT USED FOR UNKNOWN INDICATION
     Dosage: 20 MG, UNKNOWN
     Route: 065
     Dates: start: 20160630, end: 20160703
  15. HALDOL [Suspect]
     Active Substance: HALOPERIDOL
     Dosage: 10 MG, UNKNOWN
     Route: 065
     Dates: start: 20160704, end: 20160709
  16. HALDOL [Suspect]
     Active Substance: HALOPERIDOL
     Dosage: 15 MG, UNKNOWN
     Route: 065
     Dates: start: 20160810, end: 20160811
  17. HYDAL [Concomitant]
     Active Substance: HYDROMORPHONE HYDROCHLORIDE
     Dosage: 1.3 MG, UNKNOWN
     Route: 065
     Dates: start: 20160710, end: 20160710
  18. TEMESTA EXPIDET [Concomitant]
     Active Substance: LORAZEPAM
     Dosage: 5 MG, UNKNOWN
     Route: 065
     Dates: start: 20160729, end: 20160816
  19. NOVALGIN [Concomitant]
     Active Substance: METAMIZOLE SODIUM
     Dosage: 1500 MG, UNKNOWN
     Route: 065
     Dates: start: 20160630, end: 20160712
  20. RISPERDAL [Concomitant]
     Active Substance: RISPERIDONE
     Dosage: 1.5 MG, UNKNOWN
     Route: 065
     Dates: start: 20160822, end: 20160826
  21. ABILIFY [Concomitant]
     Active Substance: ARIPIPRAZOLE
     Dosage: 5 MG, UNKNOWN
     Route: 065
     Dates: start: 20160826, end: 20160826
  22. ABILIFY [Concomitant]
     Active Substance: ARIPIPRAZOLE
     Dosage: 10 MG, UNKNOWN
     Route: 065
     Dates: start: 20160827, end: 20161003
  23. ZYPREXA [Suspect]
     Active Substance: OLANZAPINE
     Indication: PRODUCT USED FOR UNKNOWN INDICATION
     Dosage: 20 MG, UNKNOWN
     Route: 065
     Dates: start: 20160630, end: 20160705
  24. TEMESTA EXPIDET [Concomitant]
     Active Substance: LORAZEPAM
     Dosage: 7.5 MG, UNKNOWN
     Route: 065
     Dates: start: 20160630, end: 20160714
  25. TEMESTA                            /00273201/ [Concomitant]
     Active Substance: LORAZEPAM
     Dosage: 2.5 MG, UNKNOWN
     Route: 065
     Dates: start: 20160824, end: 20160905
  26. TEMESTA                            /00273201/ [Concomitant]
     Active Substance: LORAZEPAM
     Dosage: 1 MG, UNKNOWN
     Route: 065
     Dates: start: 20160901, end: 20160901
  27. MEXALEN [Concomitant]
     Active Substance: ACETAMINOPHEN
     Dosage: 500 MG, UNKNOWN
     Route: 065
     Dates: start: 20160714, end: 20160816
  28. AKINETON [Concomitant]
     Active Substance: BIPERIDEN HYDROCHLORIDE
     Dosage: 4 MG, UNKNOWN
     Route: 065
     Dates: start: 20160716
  29. ZYPREXA [Suspect]
     Active Substance: OLANZAPINE
     Dosage: 15 MG, UNKNOWN
     Route: 065
     Dates: start: 20160824, end: 20160826
  30. HALDOL [Suspect]
     Active Substance: HALOPERIDOL
     Dosage: 20 MG, UNKNOWN
     Route: 065
     Dates: start: 20160731, end: 20160809
  31. TEMESTA EXPIDET [Concomitant]
     Active Substance: LORAZEPAM
     Dosage: 3.75 MG, UNKNOWN
     Route: 065
     Dates: start: 20160817, end: 20160823

REACTIONS (10)
  - Hyperhidrosis [Recovered/Resolved]
  - Gamma-glutamyltransferase increased [Recovered/Resolved]
  - C-reactive protein increased [Recovered/Resolved]
  - Salivary hypersecretion [Recovered/Resolved]
  - Akathisia [Recovered/Resolved]
  - Alanine aminotransferase increased [Unknown]
  - Platelet count increased [Recovered/Resolved]
  - Hyperprolactinaemia [Recovered/Resolved]
  - Blood alkaline phosphatase increased [Recovered/Resolved]
  - White blood cell count increased [Recovered/Resolved]

NARRATIVE: CASE EVENT DATE: 20160713
